FAERS Safety Report 9074088 (Version 1)
Quarter: 2013Q1

REPORT INFORMATION
  Report Type: Report from Study
  Country: US (occurrence: US)
  Receive Date: 20130129
  Receipt Date: 20130129
  Transmission Date: 20140127
  Serious: No
  Sender: FDA-Public Use
  Company Number: US-ABBOTT-12P-163-0918805-00

PATIENT
  Age: 78 Year
  Sex: Female

DRUGS (8)
  1. HUMIRA 40 MG/0.8 ML PEN [Suspect]
     Indication: RHEUMATOID ARTHRITIS
     Dates: start: 20120305
  2. METHOTREXATE [Concomitant]
     Indication: PRODUCT USED FOR UNKNOWN INDICATION
     Dosage: 6 PILLS EVERY WEEK
  3. TRIAMTERENE [Concomitant]
     Indication: BLOOD PRESSURE
     Dosage: 75/50MG EVERY DAY
  4. VERAPAMIL [Concomitant]
     Indication: BLOOD PRESSURE
  5. MAGNESIUM [Concomitant]
     Indication: PRODUCT USED FOR UNKNOWN INDICATION
  6. CHLORIDE [Concomitant]
     Indication: PRODUCT USED FOR UNKNOWN INDICATION
  7. PROPRANOLOL [Concomitant]
     Indication: PALPITATIONS
     Dosage: 2 PILLS AT BED TIME
  8. LORAZEPAM [Concomitant]
     Indication: PRODUCT USED FOR UNKNOWN INDICATION
     Dosage: AT BED TIME

REACTIONS (5)
  - Oedema peripheral [Not Recovered/Not Resolved]
  - Walking aid user [Unknown]
  - Oedema peripheral [Recovering/Resolving]
  - Pain in extremity [Recovering/Resolving]
  - Pain in extremity [Not Recovered/Not Resolved]
